FAERS Safety Report 20802541 (Version 1)
Quarter: 2022Q2

REPORT INFORMATION
  Report Type: Spontaneous
  Country: US (occurrence: None)
  Receive Date: 20220509
  Receipt Date: 20220509
  Transmission Date: 20220721
  Serious: No
  Sender: FDA-Public Use
  Company Number: None

PATIENT
  Age: 53 Year
  Sex: Female
  Weight: 67 kg

DRUGS (3)
  1. LETROZOLE [Suspect]
     Active Substance: LETROZOLE
     Indication: Prophylaxis
     Dosage: FREQUENCY : DAILY;?
     Route: 048
     Dates: start: 20220105, end: 20220204
  2. LETROZOLE [Suspect]
     Active Substance: LETROZOLE
     Indication: Neoplasm progression
  3. LETROZOLE [Suspect]
     Active Substance: LETROZOLE
     Indication: Breast cancer

REACTIONS (6)
  - Visual impairment [None]
  - Sinus disorder [None]
  - Dry age-related macular degeneration [None]
  - Presbyopia [None]
  - Eye naevus [None]
  - Hemiplegic migraine [None]

NARRATIVE: CASE EVENT DATE: 20220204
